FAERS Safety Report 17240592 (Version 1)
Quarter: 2020Q1

REPORT INFORMATION
  Report Type: Spontaneous
  Country: US (occurrence: US)
  Receive Date: 20200107
  Receipt Date: 20200107
  Transmission Date: 20200409
  Serious: Yes (Death, Hospitalization)
  Sender: FDA-Public Use
  Company Number: US-BIOGEN-2015BI013682

PATIENT
  Age: 65 Year
  Sex: Female

DRUGS (1)
  1. TECFIDERA [Suspect]
     Active Substance: DIMETHYL FUMARATE
     Indication: MULTIPLE SCLEROSIS
     Route: 065
     Dates: start: 20140517

REACTIONS (3)
  - Decreased immune responsiveness [Unknown]
  - Multiple sclerosis [Fatal]
  - Ulcer [Recovered/Resolved]

NARRATIVE: CASE EVENT DATE: 20141027
